FAERS Safety Report 8036381-X (Version None)
Quarter: 2012Q1

REPORT INFORMATION
  Report Type: 
  Country: None (occurrence: None)
  Receive Date: 20120111
  Receipt Date: 20120109
  Transmission Date: 20120608
  Serious: Yes (Death)
  Sender: FDA-Public Use
  Company Number: PHHY2012NL001961

PATIENT
  Sex: Male

DRUGS (3)
  1. ZOMETA [Suspect]
     Dosage: 4 MG/5 ML, 1X PER 28 DAYS
     Dates: start: 20111027
  2. ZOMETA [Suspect]
     Dosage: 4 MG/5 ML, 1X PER 28 DAYS
     Dates: start: 20111128
  3. ZOMETA [Suspect]
     Indication: PROSTATE CANCER METASTATIC
     Dosage: 4 MG/5 ML, 1X PER 28 DAYS
     Dates: start: 20101014

REACTIONS (1)
  - DEATH [None]
